FAERS Safety Report 18997713 (Version 1)
Quarter: 2021Q1

REPORT INFORMATION
  Report Type: Report from Study
  Country: ES (occurrence: ES)
  Receive Date: 20210311
  Receipt Date: 20210311
  Transmission Date: 20210420
  Serious: Yes (Death)
  Sender: FDA-Public Use
  Company Number: ES-VER-202100004

PATIENT
  Age: 61 Month
  Sex: Male
  Weight: 120 kg

DRUGS (4)
  1. BICALUTAMIDE. [Concomitant]
     Active Substance: BICALUTAMIDE
     Route: 048
     Dates: start: 20180531, end: 20180630
  2. CARBOPLATIN. [Concomitant]
     Active Substance: CARBOPLATIN
     Route: 042
     Dates: start: 20190315, end: 20191022
  3. DOCETAXEL. [Concomitant]
     Active Substance: DOCETAXEL
     Route: 042
     Dates: start: 20191030, end: 20200128
  4. TRIPTORELIN PAMOATE [Suspect]
     Active Substance: TRIPTORELIN PAMOATE
     Indication: PROSTATE CANCER
     Route: 030
     Dates: start: 20180615, end: 20191216

REACTIONS (1)
  - Sudden death [Fatal]

NARRATIVE: CASE EVENT DATE: 20200425
